FAERS Safety Report 21332125 (Version 1)
Quarter: 2022Q3

REPORT INFORMATION
  Report Type: Report from Study
  Country: US (occurrence: US)
  Receive Date: 20220914
  Receipt Date: 20220914
  Transmission Date: 20221026
  Serious: Yes (Hospitalization, Other)
  Sender: FDA-Public Use
  Company Number: US-GILEAD-2022-0597312

PATIENT
  Sex: Male

DRUGS (14)
  1. AZTREONAM LYSINE [Suspect]
     Active Substance: AZTREONAM LYSINE
     Indication: Bronchiectasis
     Dosage: 75 MG, TID, FOR 28 DAYS ON THEN 28 DAYS OFF
     Route: 055
     Dates: start: 202009
  2. EFFEXOR [Concomitant]
     Active Substance: VENLAFAXINE HYDROCHLORIDE
     Dosage: XR 75 MG CAP.SR 24H
     Dates: start: 20200921
  3. AZITHROMYCIN [Concomitant]
     Active Substance: AZITHROMYCIN
     Dosage: 100 MG/5ML SUSP RECON
     Dates: start: 20200921
  4. BUDESONIDE [Concomitant]
     Active Substance: BUDESONIDE
     Dosage: 0.5 MG/2ML AMPUL-NEB
     Dates: start: 20200921
  5. IBUPROFEN [Concomitant]
     Active Substance: IBUPROFEN
     Dosage: 200 MG TABLET
     Dates: start: 20200921
  6. DEXTROAMPHETAMINE [Concomitant]
     Active Substance: DEXTROAMPHETAMINE
     Dosage: UNKNOWN
     Dates: start: 20200921
  7. URSODIOL [Concomitant]
     Active Substance: URSODIOL
     Dosage: 300 MG CAPSULE
     Dates: start: 20200921
  8. IPRATROPIUM [Concomitant]
     Active Substance: IPRATROPIUM
     Dosage: 0.5-3MG/3 AMPUL-NEB
     Dates: start: 20200921
  9. SODIUM CHLORIDE [Concomitant]
     Active Substance: SODIUM CHLORIDE
     Dosage: 7 % VIAL-NEB
     Dates: start: 20200921
  10. SPIRIVA [Concomitant]
     Active Substance: TIOTROPIUM BROMIDE MONOHYDRATE
     Dosage: 18 MCG CAP W/DEV
     Dates: start: 20200921
  11. MIRTAZAPINE [Concomitant]
     Active Substance: MIRTAZAPINE
     Dosage: 15 MG TABLET
     Dates: start: 20200921
  12. PULMOZYME [Concomitant]
     Active Substance: DORNASE ALFA
     Dosage: 1 MG/ML AMPUL
     Dates: start: 20200921
  13. ENBREL [Concomitant]
     Active Substance: ETANERCEPT
     Dosage: 25 MG/0.5 ML SYRINGE
     Dates: start: 20200921
  14. PROAIR HFA [Concomitant]
     Active Substance: ALBUTEROL SULFATE
     Dosage: DIGIHALER 90 MCG AER PW BAS
     Dates: start: 20200921

REACTIONS (4)
  - Lung disorder [Unknown]
  - Central venous catheterisation [Unknown]
  - COVID-19 [Recovering/Resolving]
  - Off label use [Unknown]
